FAERS Safety Report 9897539 (Version 4)
Quarter: 2015Q1

REPORT INFORMATION
  Report Type: Spontaneous
  Country: US (occurrence: US)
  Receive Date: 20140214
  Receipt Date: 20150128
  Transmission Date: 20150721
  Serious: Yes (Hospitalization)
  Sender: FDA-Public Use
  Company Number: US-BAYER-2014-023618

PATIENT
  Age: 24 Year
  Sex: Female

DRUGS (7)
  1. DIFLUCAN [Concomitant]
     Active Substance: FLUCONAZOLE
  2. CEDURAN [Concomitant]
  3. MIRENA [Suspect]
     Active Substance: LEVONORGESTREL
     Indication: CONTRACEPTION
     Dosage: 20 MCG/24HR, CONT
     Route: 015
     Dates: start: 20090112, end: 20120829
  4. IBUPROFEN. [Concomitant]
     Active Substance: IBUPROFEN
  5. HYDROCORTISONE ACETATE. [Concomitant]
     Active Substance: HYDROCORTISONE ACETATE
  6. LOESTRIN NOS [Concomitant]
     Active Substance: ETHINYL ESTRADIOL\NORETHINDRONE ACETATE
  7. LO LOESTRIN FE [Concomitant]
     Active Substance: ETHINYL ESTRADIOL\NORETHINDRONE ACETATE

REACTIONS (10)
  - Procedural pain [None]
  - Medical device pain [None]
  - Medical device discomfort [None]
  - Device failure [None]
  - Pregnancy with contraceptive device [None]
  - Drug ineffective [None]
  - Injury [None]
  - Pain [None]
  - Scar [None]
  - Uterine perforation [None]

NARRATIVE: CASE EVENT DATE: 201106
